FAERS Safety Report 14003744 (Version 1)
Quarter: 2017Q3

REPORT INFORMATION
  Report Type: Spontaneous
  Country: US (occurrence: US)
  Receive Date: 20170922
  Receipt Date: 20170922
  Transmission Date: 20171128
  Serious: No
  Sender: FDA-Public Use
  Company Number: US-JNJFOC-20170817740

PATIENT
  Age: 66 Year
  Sex: Female
  Weight: 97.1 kg

DRUGS (1)
  1. DOXIL [Suspect]
     Active Substance: DOXORUBICIN HYDROCHLORIDE
     Indication: OVARIAN CANCER
     Route: 042
     Dates: start: 20170223, end: 201707

REACTIONS (2)
  - Oral infection [Unknown]
  - Dermatitis [Unknown]

NARRATIVE: CASE EVENT DATE: 201707
